FAERS Safety Report 25097835 (Version 1)
Quarter: 2025Q1

REPORT INFORMATION
  Report Type: Spontaneous
  Country: US (occurrence: US)
  Receive Date: 20250320
  Receipt Date: 20250320
  Transmission Date: 20250409
  Serious: Yes (Hospitalization, Other)
  Sender: Haleon PLC
  Company Number: US-HALEON-2233681

PATIENT
  Age: 27 Year
  Sex: Male

DRUGS (1)
  1. OXYMETAZOLINE [Suspect]
     Active Substance: OXYMETAZOLINE
     Indication: Rhinitis

REACTIONS (7)
  - Acute myocardial infarction [Recovered/Resolved]
  - Overdose [Unknown]
  - Chest pain [Unknown]
  - Cardiac arrest [Recovered/Resolved]
  - Ventricular fibrillation [Recovered/Resolved]
  - Arteriospasm coronary [Unknown]
  - Fall [Unknown]
